FAERS Safety Report 12699222 (Version 4)
Quarter: 2019Q1

REPORT INFORMATION
  Report Type: Spontaneous
  Country: FR (occurrence: FR)
  Receive Date: 20160830
  Receipt Date: 20190131
  Transmission Date: 20190417
  Serious: Yes (Hospitalization, Other)
  Sender: FDA-Public Use
  Company Number: FR-BIOGEN-2016BI00284206

PATIENT
  Age: 42 Year
  Sex: Female

DRUGS (4)
  1. LEVOCARNITINE. [Concomitant]
     Active Substance: LEVOCARNITINE
     Indication: FATIGUE
     Route: 065
     Dates: start: 20160314
  2. TYSABRI [Suspect]
     Active Substance: NATALIZUMAB
     Indication: MULTIPLE SCLEROSIS
     Route: 042
     Dates: start: 201205
  3. DEPAMIDE [Concomitant]
     Active Substance: VALPROMIDE
     Indication: MENTAL DISORDER
     Route: 065
  4. FLUOXETINE [Concomitant]
     Active Substance: FLUOXETINE HYDROCHLORIDE
     Indication: MENTAL DISORDER
     Route: 065

REACTIONS (4)
  - Papilloma viral infection [Recovered/Resolved]
  - Cervical dysplasia [Recovered/Resolved]
  - Autoimmune thyroiditis [Recovered/Resolved]
  - Papillary thyroid cancer [Recovered/Resolved]

NARRATIVE: CASE EVENT DATE: 201607
